FAERS Safety Report 11321762 (Version 1)
Quarter: 2015Q3

REPORT INFORMATION
  Report Type: Spontaneous
  Country: US (occurrence: US)
  Receive Date: 20150729
  Receipt Date: 20150729
  Transmission Date: 20151125
  Serious: No
  Sender: FDA-Public Use
  Company Number: US-ENDO PHARMACEUTICALS INC.-HCDA20140167

PATIENT
  Sex: Female

DRUGS (1)
  1. HYDROCODONE BITARTRATE / APAP ORAL SOLUTION 7.5MG/325MG PER 15ML [Suspect]
     Active Substance: ACETAMINOPHEN\HYDROCODONE BITARTRATE
     Indication: PAIN
     Dosage: 10ML BID
     Route: 048
     Dates: start: 20141023

REACTIONS (1)
  - Drug ineffective [Unknown]
